FAERS Safety Report 9107968 (Version 1)
Quarter: 2013Q1

REPORT INFORMATION
  Report Type: Spontaneous
  Country: PE (occurrence: PE)
  Receive Date: 20130221
  Receipt Date: 20130221
  Transmission Date: 20140127
  Serious: Yes (Hospitalization)
  Sender: FDA-Public Use
  Company Number: PE-PFIZER INC-2013065361

PATIENT
  Age: 58 Year
  Sex: Male

DRUGS (1)
  1. CARDURA XL [Suspect]
     Dosage: 4 MG, UNK
     Route: 048

REACTIONS (1)
  - Cyst [Unknown]
